FAERS Safety Report 12277267 (Version 1)
Quarter: 2016Q2

REPORT INFORMATION
  Report Type: Spontaneous
  Country: US (occurrence: US)
  Receive Date: 20160418
  Receipt Date: 20160418
  Transmission Date: 20160815
  Serious: No
  Sender: FDA-Public Use
  Company Number: US-TEVA-639974USA

PATIENT
  Age: 45 Year
  Sex: Female

DRUGS (1)
  1. ZECUITY [Suspect]
     Active Substance: SUMATRIPTAN SUCCINATE
     Route: 062
     Dates: start: 20160227, end: 20160227

REACTIONS (5)
  - Application site pruritus [Unknown]
  - Application site swelling [Unknown]
  - Application site pain [Unknown]
  - Application site warmth [Unknown]
  - Insomnia [Unknown]

NARRATIVE: CASE EVENT DATE: 201602
